FAERS Safety Report 12246701 (Version 2)
Quarter: 2016Q3

REPORT INFORMATION
  Report Type: Spontaneous
  Country: DE (occurrence: DE)
  Receive Date: 20160407
  Receipt Date: 20160705
  Transmission Date: 20161109
  Serious: Yes (Other)
  Sender: FDA-Public Use
  Company Number: GXKR2016DE001733

PATIENT
  Age: 3 Year
  Sex: Male
  Weight: 20 kg

DRUGS (1)
  1. AMOXI TS 1A PHARMA [Suspect]
     Active Substance: AMOXICILLIN
     Indication: OTITIS MEDIA
     Dosage: 5 ML, TID
     Route: 048
     Dates: start: 20160331, end: 20160402

REACTIONS (9)
  - Hallucination [Unknown]
  - Asthenia [Unknown]
  - Somnolence [Unknown]
  - Chills [Unknown]
  - Pyrexia [Unknown]
  - Ocular icterus [Unknown]
  - Haematoma [Unknown]
  - Eye pain [Unknown]
  - Lip dry [Unknown]

NARRATIVE: CASE EVENT DATE: 20160401
